FAERS Safety Report 17755290 (Version 1)
Quarter: 2020Q2

REPORT INFORMATION
  Report Type: Spontaneous
  Country: US (occurrence: US)
  Receive Date: 20200507
  Receipt Date: 20200507
  Transmission Date: 20200714
  Serious: Yes (Other)
  Sender: FDA-Public Use
  Company Number: US-PFIZER INC-2020182627

PATIENT
  Age: 38 Year
  Sex: Female

DRUGS (1)
  1. ZYVOX [Suspect]
     Active Substance: LINEZOLID
     Dosage: 600 MG, 2X/DAY

REACTIONS (4)
  - Staphylococcal infection [Unknown]
  - Cellulitis [Unknown]
  - Wound infection [Unknown]
  - Humerus fracture [Unknown]
